FAERS Safety Report 5429056-4 (Version None)
Quarter: 2007Q3

REPORT INFORMATION
  Report Type: 
  Country: None (occurrence: None)
  Receive Date: 20070829
  Receipt Date: 20070518
  Transmission Date: 20080115
  Serious: No
  Sender: FDA-Public Use
  Company Number: A0649490A

PATIENT
  Age: 23 Year
  Sex: Male

DRUGS (1)
  1. MALARONE [Suspect]
     Indication: MALARIA PROPHYLAXIS
     Dosage: 1TAB PER DAY
     Route: 048
     Dates: start: 20070401, end: 20070101

REACTIONS (1)
  - HEADACHE [None]
